FAERS Safety Report 9849099 (Version 1)
Quarter: 2013Q4

REPORT INFORMATION
  Report Type: Spontaneous
  Country: US (occurrence: None)
  Receive Date: 20131224
  Receipt Date: 20131224
  Transmission Date: 20140711
  Serious: Yes (Other)
  Sender: FDA-Public Use
  Company Number: PHEH2013US012133

PATIENT
  Age: 64 Year
  Sex: Male

DRUGS (5)
  1. MYFORTIC [Suspect]
     Route: 048
     Dates: start: 2008
  2. ENTECAVIR (ENTECAVIR) [Concomitant]
  3. INTERFERON (INTERFERON) [Concomitant]
  4. VITAMIN D (ERGOCALCIFEROL) [Concomitant]
  5. CALCIUM MAGNESIUM (CALCIUM, MAGNESIUM) [Concomitant]

REACTIONS (2)
  - Hepatitis C [None]
  - Hepatitis B [None]
